FAERS Safety Report 5804109-7 (Version None)
Quarter: 2008Q3

REPORT INFORMATION
  Report Type: 
  Country: None (occurrence: None)
  Receive Date: 20080707
  Receipt Date: 20080707
  Transmission Date: 20090109
  Serious: No
  Sender: FDA-Public Use
  Company Number: None

PATIENT
  Age: 51 Year
  Sex: Female
  Weight: 84.8226 kg

DRUGS (1)
  1. LITHIUM CARBONATE [Suspect]
     Dosage: 300MG HS PO
     Route: 048
     Dates: start: 20080615, end: 20080702

REACTIONS (2)
  - NAUSEA [None]
  - PHARMACEUTICAL PRODUCT COMPLAINT [None]
